FAERS Safety Report 9171624 (Version 2)
Quarter: 2013Q2

REPORT INFORMATION
  Report Type: Spontaneous
  Country: FR (occurrence: FR)
  Receive Date: 20130319
  Receipt Date: 20130429
  Transmission Date: 20140414
  Serious: Yes (Other)
  Sender: FDA-Public Use
  Company Number: FR-GLAXOSMITHKLINE-B0873894A

PATIENT
  Age: 66 Year
  Sex: Female
  Weight: 70 kg

DRUGS (2)
  1. ARIXTRA [Suspect]
     Indication: THROMBOPHLEBITIS SUPERFICIAL
     Dosage: 7.5MG PER DAY
     Route: 058
     Dates: start: 20130131, end: 20130205
  2. LEVOTHYROX [Concomitant]
     Route: 048

REACTIONS (2)
  - Muscle haemorrhage [Recovering/Resolving]
  - Prescribed overdose [Unknown]
